FAERS Safety Report 6527494-X (Version None)
Quarter: 2010Q1

REPORT INFORMATION
  Report Type: 
  Country: None (occurrence: None)
  Receive Date: 20100105
  Receipt Date: 20091222
  Transmission Date: 20100710
  Serious: Yes (Hospitalization)
  Sender: FDA-Public Use
  Company Number: IT-MYLANLABS-2009S1021801

PATIENT
  Sex: Female

DRUGS (1)
  1. FUROSEMIDE [Suspect]
     Indication: DRUG USE FOR UNKNOWN INDICATION

REACTIONS (2)
  - DERMATITIS ALLERGIC [None]
  - PRURITUS [None]
